FAERS Safety Report 6544790-0 (Version None)
Quarter: 2010Q1

REPORT INFORMATION
  Report Type: 
  Country: None (occurrence: None)
  Receive Date: 20100120
  Receipt Date: 20100120
  Transmission Date: 20100710
  Serious: No
  Sender: FDA-Public Use
  Company Number: None

PATIENT
  Age: 51 Year
  Sex: Female
  Weight: 77.1115 kg

DRUGS (1)
  1. FLUCONAZOLE [Suspect]
     Indication: CANDIDIASIS
     Dosage: 1 TABLET 1 TIME ONLY PO ONE DOSE ONLY
     Route: 048
     Dates: start: 20100113, end: 20100113

REACTIONS (9)
  - DERMATITIS [None]
  - EYE SWELLING [None]
  - EYELIDS PRURITUS [None]
  - HYPOAESTHESIA FACIAL [None]
  - OCULAR HYPERAEMIA [None]
  - PARAESTHESIA [None]
  - PRURITUS [None]
  - RASH ERYTHEMATOUS [None]
  - RASH PAPULAR [None]
